FAERS Safety Report 8337679-8 (Version None)
Quarter: 2012Q2

REPORT INFORMATION
  Report Type: 
  Country: None (occurrence: None)
  Receive Date: 20120504
  Receipt Date: 20120504
  Transmission Date: 20120825
  Serious: Yes (Other)
  Sender: FDA-Public Use
  Company Number: None

PATIENT
  Age: 48 Year
  Sex: Female
  Weight: 113.39 kg

DRUGS (1)
  1. SIMVASTATIN [Suspect]
     Indication: HYPERLIPIDAEMIA
     Dosage: |DOSAGETEXT: 40 MG -1/2-||STRENGTH: 40 MG||FREQ: ONCE DAILY||ROUTE: ORAL|
     Route: 048
     Dates: start: 20120424, end: 20120501

REACTIONS (6)
  - JOINT SWELLING [None]
  - ARTHRALGIA [None]
  - OEDEMA PERIPHERAL [None]
  - MYALGIA [None]
  - IMPAIRED WORK ABILITY [None]
  - SWOLLEN TONGUE [None]
